FAERS Safety Report 14244120 (Version 1)
Quarter: 2017Q4

REPORT INFORMATION
  Report Type: Spontaneous
  Country: US (occurrence: US)
  Receive Date: 20171201
  Receipt Date: 20171201
  Transmission Date: 20180321
  Serious: No
  Sender: FDA-Public Use
  Company Number: US-MYLANLABS-2017M1074893

PATIENT
  Sex: Male
  Weight: 109 kg

DRUGS (1)
  1. FENTANYL TRANSDERMAL SYSTEM [Suspect]
     Active Substance: FENTANYL
     Indication: DIABETIC NEUROPATHY
     Dosage: 100 ?G/HR, CHANGED EVERY 48 HOURS
     Route: 062

REACTIONS (2)
  - Drug effect decreased [Recovered/Resolved]
  - Product packaging quantity issue [Unknown]
